FAERS Safety Report 12717773 (Version 2)
Quarter: 2016Q4

REPORT INFORMATION
  Report Type: Spontaneous
  Country: US (occurrence: US)
  Receive Date: 20160906
  Receipt Date: 20161021
  Transmission Date: 20170207
  Serious: No
  Sender: FDA-Public Use
  Company Number: US-EMERGENT BIOSOLUTIONS-16BA00101SP

PATIENT
  Age: 38 Year
  Sex: Male

DRUGS (8)
  1. PANTOPRAZOLE [Concomitant]
     Active Substance: PANTOPRAZOLE SODIUM
     Dosage: 40 MG, QD
     Route: 042
     Dates: start: 20160607, end: 20160627
  2. ENOXAPARIN SODIUM. [Concomitant]
     Active Substance: ENOXAPARIN SODIUM
     Dosage: 100 MG/ML, UNK
     Route: 058
     Dates: start: 20160607, end: 20160627
  3. PIPERACILLIN TAZOBACTAM TEVA [Concomitant]
     Dosage: 3.375 G, Q6H
     Route: 042
     Dates: start: 20160607, end: 20160627
  4. DOXEPIN [Concomitant]
     Active Substance: DOXEPIN
     Dosage: 25 MG, QD
     Route: 048
     Dates: start: 20160607, end: 20160627
  5. METOPROLOL SUCCINATE. [Concomitant]
     Active Substance: METOPROLOL SUCCINATE
     Dosage: UNK UNK, Q6H
     Route: 042
     Dates: start: 20160607, end: 20160627
  6. BAT [Suspect]
     Active Substance: EQUINE BOTULINUM NEUROTOXIN A/B/C/D/E/F/G IMMUNE FAB2
     Indication: BOTULISM
     Dosage: 180 ML, SINGLE
     Dates: start: 20160615, end: 20160616
  7. SCOPOLAMINE HBR [Concomitant]
     Active Substance: SCOPOLAMINE
     Dosage: 1.5 MG, UNK
     Route: 061
     Dates: start: 20160607, end: 20160627
  8. LEVALBUTEROL. [Concomitant]
     Active Substance: LEVALBUTEROL
     Dosage: .63 MG, Q6H
     Route: 050
     Dates: start: 20160607, end: 20160627

REACTIONS (2)
  - Tachycardia [Recovered/Resolved]
  - Hyperhidrosis [Recovered/Resolved]

NARRATIVE: CASE EVENT DATE: 20160615
